FAERS Safety Report 7087351-X (Version None)
Quarter: 2010Q4

REPORT INFORMATION
  Report Type: 
  Country: None (occurrence: None)
  Receive Date: 20101108
  Receipt Date: 20101028
  Transmission Date: 20110411
  Serious: Yes (Hospitalization)
  Sender: FDA-Public Use
  Company Number: US-BIOGENIDEC-2008BI029511

PATIENT
  Age: 56 Year
  Sex: Male

DRUGS (3)
  1. AVONEX [Suspect]
     Indication: MULTIPLE SCLEROSIS
     Route: 030
     Dates: start: 20011111
  2. BACLOFEN [Concomitant]
     Indication: MUSCLE SPASTICITY
  3. WELLBUTRIN [Concomitant]
     Indication: PRODUCT USED FOR UNKNOWN INDICATION

REACTIONS (7)
  - ABNORMAL BEHAVIOUR [None]
  - CELLULITIS [None]
  - DELIRIUM [None]
  - HALLUCINATION, VISUAL [None]
  - LYMPHATIC DISORDER [None]
  - LYMPHOEDEMA [None]
  - URINARY TRACT INFECTION [None]
